FAERS Safety Report 23912051 (Version 1)
Quarter: 2024Q2

REPORT INFORMATION
  Report Type: Spontaneous
  Country: SE (occurrence: SE)
  Receive Date: 20240528
  Receipt Date: 20240528
  Transmission Date: 20240716
  Serious: Yes (Life-Threatening, Hospitalization, Disabling)
  Sender: FDA-Public Use
  Company Number: None

PATIENT
  Age: 81 Year
  Sex: Male

DRUGS (5)
  1. ACYCLOVIR [Suspect]
     Active Substance: ACYCLOVIR
     Indication: Herpes zoster meningoencephalitis
     Dosage: 770 MILLIGRAM, TID
     Route: 065
     Dates: start: 20240409, end: 20240411
  2. INNOHEP [Concomitant]
     Active Substance: TINZAPARIN SODIUM
     Dosage: 1 DOSAGE FORM, QD (STRENGTH: 3500 ANTI-XA IU)
     Route: 065
     Dates: start: 20240409
  3. SMOFKABIVEN PERIFER [Concomitant]
     Dosage: 1 DOSAGE FORM, QD
     Route: 065
     Dates: start: 20240408, end: 20240410
  4. NYSTATIN [Concomitant]
     Active Substance: NYSTATIN
     Dosage: 20000 INTERNATIONAL UNIT, QID
     Route: 065
     Dates: start: 20240310, end: 20240421
  5. OLANZAPINE [Concomitant]
     Active Substance: OLANZAPINE
     Dosage: 2.5 MILLIGRAM, PRN
     Route: 065
     Dates: start: 20240306, end: 20240510

REACTIONS (8)
  - Toxicity to various agents [Recovered/Resolved with Sequelae]
  - Dysphagia [Unknown]
  - Fluid retention [Unknown]
  - Blood pressure decreased [Unknown]
  - Oxygen saturation decreased [Unknown]
  - Acute kidney injury [Recovered/Resolved with Sequelae]
  - Anuria [Recovered/Resolved with Sequelae]
  - Loss of consciousness [Recovered/Resolved with Sequelae]

NARRATIVE: CASE EVENT DATE: 20240401
